FAERS Safety Report 5518655-7 (Version None)
Quarter: 2007Q4

REPORT INFORMATION
  Report Type: 
  Country: None (occurrence: None)
  Receive Date: 20071115
  Receipt Date: 20071114
  Transmission Date: 20080405
  Serious: Yes (Hospitalization, Disabling)
  Sender: FDA-Public Use
  Company Number: HQWYE187517SEP07

PATIENT
  Sex: Male

DRUGS (3)
  1. INDERAL [Suspect]
     Indication: TREMOR
     Route: 048
  2. LITHIONIT [Concomitant]
     Indication: DEPRESSION
  3. EFFEXOR [Concomitant]
     Indication: DEPRESSION

REACTIONS (1)
  - RETINAL VASCULAR THROMBOSIS [None]
